FAERS Safety Report 6558375-3 (Version None)
Quarter: 2010Q1

REPORT INFORMATION
  Report Type: 
  Country: None (occurrence: None)
  Receive Date: 20100129
  Receipt Date: 20100125
  Transmission Date: 20100710
  Serious: Yes (Hospitalization, Disabling, Other)
  Sender: FDA-Public Use
  Company Number: US-MERCK-0612USA04043

PATIENT
  Age: 64 Year
  Sex: Female
  Weight: 44 kg

DRUGS (5)
  1. FOSAMAX [Suspect]
     Indication: OSTEOPOROSIS
     Route: 048
     Dates: start: 20011207, end: 20050309
  2. ZETIA [Concomitant]
     Route: 048
  3. ASPIRIN [Concomitant]
     Route: 065
  4. CENTRUM SILVER [Concomitant]
     Route: 065
  5. CALCIUM CITRATE [Concomitant]
     Route: 065

REACTIONS (16)
  - BONE DENSITY DECREASED [None]
  - BONE DISORDER [None]
  - FLAT ANTERIOR CHAMBER OF EYE [None]
  - HEADACHE [None]
  - IMPAIRED HEALING [None]
  - INFECTION [None]
  - JOINT SWELLING [None]
  - LIVER FUNCTION TEST ABNORMAL [None]
  - LOOSE TOOTH [None]
  - NECROSIS [None]
  - ORAL CAVITY FISTULA [None]
  - ORAL INFECTION [None]
  - ORAL TORUS [None]
  - OSTEOMYELITIS [None]
  - OSTEONECROSIS [None]
  - STOMATITIS [None]
